FAERS Safety Report 4718345-4 (Version None)
Quarter: 2005Q3

REPORT INFORMATION
  Report Type: 
  Country: None (occurrence: None)
  Receive Date: 20050720
  Receipt Date: 20050708
  Transmission Date: 20060218
  Serious: Yes (Hospitalization)
  Sender: FDA-Public Use
  Company Number: FR-JNJFOC-20050702684

PATIENT
  Age: 41 Year
  Sex: Female

DRUGS (3)
  1. TOPALGIC [Suspect]
     Dosage: 50 MG PO UNKNOWN DAILY DOSE
     Route: 048
  2. CODOLIPRANE [Suspect]
     Route: 048
  3. CODOLIPRANE [Suspect]
     Route: 048

REACTIONS (1)
  - SYSTEMIC LUPUS ERYTHEMATOSUS [None]
